FAERS Safety Report 10373583 (Version 3)
Quarter: 2018Q4

REPORT INFORMATION
  Report Type: Spontaneous
  Country: US (occurrence: US)
  Receive Date: 20140808
  Receipt Date: 20181216
  Transmission Date: 20190204
  Serious: Yes (Other)
  Sender: FDA-Public Use
  Company Number: US-TEVA-500269USA

PATIENT
  Sex: Female

DRUGS (3)
  1. MULTIVITAMIN - NATURE^S MADE [Concomitant]
     Dosage: 1 DOSAGE FORMS DAILY;
     Dates: start: 201404, end: 201407
  2. FISH OIL - NATURE^S MADE [Concomitant]
     Dosage: 1 DOSAGE FORMS DAILY;
     Dates: start: 201404, end: 201407
  3. TAKE ACTION [Suspect]
     Active Substance: LEVONORGESTREL
     Indication: PRODUCT USED FOR UNKNOWN INDICATION
     Route: 065
     Dates: start: 20140704, end: 20140704

REACTIONS (2)
  - Pregnancy after post coital contraception [Unknown]
  - Maternal exposure before pregnancy [Unknown]
